FAERS Safety Report 24845537 (Version 2)
Quarter: 2025Q1

REPORT INFORMATION
  Report Type: Spontaneous
  Country: JP (occurrence: JP)
  Receive Date: 20250115
  Receipt Date: 20250117
  Transmission Date: 20250409
  Serious: Yes (Other)
  Sender: PFIZER
  Company Number: JP-PFIZER INC-PV202400168773

PATIENT
  Age: 28 Year

DRUGS (5)
  1. CIBINQO [Suspect]
     Active Substance: ABROCITINIB
     Indication: Dermatitis atopic
     Dosage: 100 MG, DAILY
     Route: 048
     Dates: start: 20240717
  2. CIBINQO [Suspect]
     Active Substance: ABROCITINIB
     Dates: start: 20240806
  3. CIBINQO [Suspect]
     Active Substance: ABROCITINIB
     Dates: start: 20240823
  4. CIBINQO [Suspect]
     Active Substance: ABROCITINIB
     Dates: end: 20240910
  5. CIBINQO [Suspect]
     Active Substance: ABROCITINIB
     Dates: start: 20241202, end: 202412

REACTIONS (4)
  - Depressed level of consciousness [Recovering/Resolving]
  - Nausea [Recovered/Resolved]
  - Vomiting [Recovered/Resolved]
  - Feeling abnormal [Recovering/Resolving]

NARRATIVE: CASE EVENT DATE: 20240901
